FAERS Safety Report 16224841 (Version 1)
Quarter: 2019Q2

REPORT INFORMATION
  Report Type: Report from Study
  Country: NL (occurrence: NL)
  Receive Date: 20190422
  Receipt Date: 20190422
  Transmission Date: 20190711
  Serious: Yes (Other)
  Sender: FDA-Public Use
  Company Number: NL-MYLANLABS-2019M1036946

PATIENT
  Age: 68 Year
  Sex: Female

DRUGS (4)
  1. TRANYLCYPROMINE [Interacting]
     Active Substance: TRANYLCYPROMINE
     Indication: DEPRESSION
     Dosage: 2 DOSAGE FORM, BID
     Dates: start: 2005
  2. COLECALCIFEROL [Concomitant]
     Active Substance: CHOLECALCIFEROL
     Indication: VITAMIN D DEFICIENCY
     Dosage: 800 INTERNATIONAL UNIT, QD
  3. LORAZEPAM. [Concomitant]
     Active Substance: LORAZEPAM
     Indication: TENSION
     Dosage: 0.5 DOSAGE FORM, QD
     Route: 048
     Dates: start: 20130711
  4. MIRTAZAPINE. [Suspect]
     Active Substance: MIRTAZAPINE
     Indication: SLEEP DISORDER
     Dosage: 0.5 DOSAGE FORM, QD
     Route: 048
     Dates: start: 20130711

REACTIONS (4)
  - Nephropathy toxic [Unknown]
  - Contraindicated product administered [Not Recovered/Not Resolved]
  - Drug interaction [Unknown]
  - Prescribed overdose [Not Recovered/Not Resolved]

NARRATIVE: CASE EVENT DATE: 2005
